FAERS Safety Report 10029949 (Version 2)
Quarter: 2014Q1

REPORT INFORMATION
  Report Type: Spontaneous
  Country: US (occurrence: US)
  Receive Date: 20140323
  Receipt Date: 20140323
  Transmission Date: 20141002
  Serious: No
  Sender: FDA-Public Use
  Company Number: US-ALLERGAN-1306102US

PATIENT
  Sex: Male

DRUGS (3)
  1. LATISSE 0.03% [Suspect]
     Indication: HAIR GROWTH ABNORMAL
     Dosage: 2 GTT, UNK
     Route: 061
     Dates: start: 201303
  2. LOSARTAN [Concomitant]
     Indication: HYPERTENSION
  3. IMMUNOSUPPRESANTS NOS [Concomitant]
     Indication: RENAL TRANSPLANT

REACTIONS (5)
  - Off label use [Unknown]
  - Asthenopia [Recovered/Resolved]
  - Sensory disturbance [Recovering/Resolving]
  - Intraocular pressure increased [Unknown]
  - Eye pain [Recovered/Resolved]
